FAERS Safety Report 17144448 (Version 6)
Quarter: 2020Q4

REPORT INFORMATION
  Report Type: Spontaneous
  Country: US (occurrence: US)
  Receive Date: 20191212
  Receipt Date: 20201216
  Transmission Date: 20210113
  Serious: Yes (Other)
  Sender: FDA-Public Use
  Company Number: US-PFIZER INC-2019533345

PATIENT
  Age: 67 Year
  Sex: Male
  Weight: 179.67 kg

DRUGS (6)
  1. LYRICA [Suspect]
     Active Substance: PREGABALIN
     Indication: BACK PAIN
     Dosage: 150 MG, 3X/DAY
     Route: 048
  2. LYRICA [Suspect]
     Active Substance: PREGABALIN
     Indication: MYELOPATHY
  3. TRAMADOL. [Concomitant]
     Active Substance: TRAMADOL
     Indication: PAIN
     Dosage: UNK
  4. LYRICA [Suspect]
     Active Substance: PREGABALIN
     Indication: CERVICAL RADICULOPATHY
  5. LYRICA [Suspect]
     Active Substance: PREGABALIN
     Indication: SCIATICA
  6. LYRICA [Suspect]
     Active Substance: PREGABALIN
     Indication: SPONDYLITIC MYELOPATHY

REACTIONS (3)
  - Neoplasm malignant [Unknown]
  - Cataract [Unknown]
  - Limb discomfort [Unknown]
